FAERS Safety Report 10473533 (Version 2)
Quarter: 2014Q4

REPORT INFORMATION
  Report Type: Spontaneous
  Country: US (occurrence: US)
  Receive Date: 20140924
  Receipt Date: 20141021
  Transmission Date: 20150528
  Serious: No
  Sender: FDA-Public Use
  Company Number: US-009507513-1409USA009984

PATIENT
  Sex: Female
  Weight: 94.97 kg

DRUGS (1)
  1. ASMANEX [Suspect]
     Active Substance: MOMETASONE FUROATE
     Indication: ASTHMA
     Dosage: 1 PUFF, TWICE DAILY
     Route: 055
     Dates: start: 2008

REACTIONS (4)
  - Drug dose omission [Unknown]
  - No adverse event [Unknown]
  - Medication error [Unknown]
  - Product quality issue [Unknown]
